FAERS Safety Report 5373293-4 (Version None)
Quarter: 2007Q2

REPORT INFORMATION
  Report Type: 
  Country: None (occurrence: None)
  Receive Date: 20070626
  Receipt Date: 20070626
  Transmission Date: 20071010
  Serious: Yes (Hospitalization)
  Sender: FDA-Public Use
  Company Number: None

PATIENT
  Sex: Male
  Weight: 87 kg

DRUGS (2)
  1. ZOMETA [Suspect]
     Indication: OSTEOPOROSIS
     Dosage: 4 MG IV Q 12 WEEKS
     Route: 042
     Dates: start: 20070306
  2. ZOMETA [Suspect]
     Indication: OSTEOPOROSIS
     Dosage: 4 MG IV Q 12 WEEKS
     Route: 042
     Dates: start: 20070604

REACTIONS (5)
  - BREATH SOUNDS ABNORMAL [None]
  - CHEST PAIN [None]
  - CREPITATIONS [None]
  - FLANK PAIN [None]
  - PULMONARY EMBOLISM [None]
